FAERS Safety Report 12630186 (Version 4)
Quarter: 2016Q4

REPORT INFORMATION
  Report Type: Report from Study
  Country: CA (occurrence: CA)
  Receive Date: 20160808
  Receipt Date: 20161013
  Transmission Date: 20170207
  Serious: Yes (Hospitalization, Other)
  Sender: FDA-Public Use
  Company Number: CA-JNJFOC-20160803649

PATIENT
  Age: 30 Year
  Sex: Female
  Weight: 48.4 kg

DRUGS (2)
  1. REMICADE [Suspect]
     Active Substance: INFLIXIMAB
     Indication: COLITIS ULCERATIVE
     Dosage: DOSE: 227.2 MG
     Route: 042
     Dates: start: 20160906, end: 20161006
  2. REMICADE [Suspect]
     Active Substance: INFLIXIMAB
     Indication: COLITIS ULCERATIVE
     Dosage: DOSE: 227.2 MG
     Route: 042
     Dates: start: 20160725

REACTIONS (10)
  - Weight decreased [Unknown]
  - Rash pruritic [Unknown]
  - General physical health deterioration [Unknown]
  - Hospitalisation [Unknown]
  - Pyrexia [Unknown]
  - Frequent bowel movements [Recovering/Resolving]
  - Fungal skin infection [Unknown]
  - Erythema [Unknown]
  - External ear cellulitis [Recovering/Resolving]
  - Haematochezia [Not Recovered/Not Resolved]

NARRATIVE: CASE EVENT DATE: 201608
